FAERS Safety Report 12156430 (Version 3)
Quarter: 2016Q1

REPORT INFORMATION
  Report Type: Spontaneous
  Country: US (occurrence: US)
  Receive Date: 20160307
  Receipt Date: 20160314
  Transmission Date: 20160526
  Serious: Yes (Hospitalization, Other)
  Sender: FDA-Public Use
  Company Number: US-PFIZER INC-2016135447

PATIENT
  Age: 55 Year
  Sex: Female
  Weight: 108 kg

DRUGS (9)
  1. LYRICA [Suspect]
     Active Substance: PREGABALIN
     Indication: HYPOAESTHESIA
     Dosage: 50 MG, 2X/DAY
     Route: 048
  2. LYRICA [Suspect]
     Active Substance: PREGABALIN
     Indication: ACTIVITIES OF DAILY LIVING IMPAIRED
     Dosage: 75 MG, 2X/DAY
     Route: 048
  3. NOVOLOG [Concomitant]
     Active Substance: INSULIN ASPART
     Indication: DIABETES MELLITUS
     Dosage: 300 IU, EVERY 4 DAYS
     Dates: start: 2005
  4. LYRICA [Suspect]
     Active Substance: PREGABALIN
     Dosage: 150 MG, 2X/DAY
     Route: 048
     Dates: start: 2007
  5. POTASSIUM [Suspect]
     Active Substance: POTASSIUM
     Indication: BLOOD POTASSIUM DECREASED
     Dosage: 30 ML, 2X/DAY, 10 PERCENT LIQUID
     Dates: start: 2000, end: 201512
  6. LYRICA [Suspect]
     Active Substance: PREGABALIN
     Indication: PAIN IN EXTREMITY
     Dosage: 50 MG, 1X/DAY
     Route: 048
  7. LASIX [Concomitant]
     Active Substance: FUROSEMIDE
     Indication: PERIPHERAL SWELLING
     Dosage: 5 MG, 1X/DAY
     Route: 048
     Dates: start: 2006
  8. ASPIRIN. [Concomitant]
     Active Substance: ASPIRIN
     Indication: ANTICOAGULANT THERAPY
     Dosage: 81 MG, 1X/DAY
     Route: 048
  9. MAG64 [Concomitant]
     Indication: BLOOD MAGNESIUM DECREASED
     Dosage: 1 DF, 3X/DAY
     Route: 048
     Dates: start: 2005

REACTIONS (7)
  - Cerebrovascular accident [Unknown]
  - Chest pain [Unknown]
  - Pain [Unknown]
  - Drug effect incomplete [Unknown]
  - Blood potassium increased [Unknown]
  - Clostridium difficile infection [Unknown]
  - Pneumonia [Unknown]

NARRATIVE: CASE EVENT DATE: 201202
